FAERS Safety Report 6021393-8 (Version None)
Quarter: 2008Q4

REPORT INFORMATION
  Report Type: 
  Country: None (occurrence: None)
  Receive Date: 20081229
  Receipt Date: 20081219
  Transmission Date: 20090506
  Serious: Yes (Hospitalization)
  Sender: FDA-Public Use
  Company Number: B0551252A

PATIENT
  Age: 36 Year
  Sex: Female

DRUGS (2)
  1. CLAMOXYL [Suspect]
     Indication: LYMPHANGITIS
     Route: 048
     Dates: start: 20070901, end: 20070901
  2. BREXIN [Suspect]
     Indication: LYMPHANGITIS
     Route: 048
     Dates: start: 20070901, end: 20070901

REACTIONS (5)
  - ACUTE GENERALISED EXANTHEMATOUS PUSTULOSIS [None]
  - INFLAMMATION [None]
  - PRURIGO [None]
  - PYREXIA [None]
  - SKIN OEDEMA [None]
